FAERS Safety Report 5867772-0 (Version None)
Quarter: 2008Q3

REPORT INFORMATION
  Report Type: 
  Country: None (occurrence: None)
  Receive Date: 20080902
  Receipt Date: 20080827
  Transmission Date: 20090109
  Serious: Yes (Hospitalization)
  Sender: FDA-Public Use
  Company Number: US-AVENTIS-200711946GDDC

PATIENT
  Age: 72 Year
  Sex: Male
  Weight: 80.9 kg

DRUGS (3)
  1. TAXOTERE [Suspect]
     Route: 042
     Dates: start: 20070214, end: 20070214
  2. CODE UNBROKEN [Suspect]
     Route: 048
     Dates: start: 20061122, end: 20070228
  3. GLIPIZIDE [Concomitant]
     Dosage: ROUTE: GASTROSTOMY TUBE
     Route: 050

REACTIONS (10)
  - ANAEMIA [None]
  - ASTHENIA [None]
  - BLOOD IRON DECREASED [None]
  - HYPOALBUMINAEMIA [None]
  - HYPOKALAEMIA [None]
  - HYPONATRAEMIA [None]
  - HYPOTENSION [None]
  - HYPOXIA [None]
  - PERIORBITAL CELLULITIS [None]
  - PNEUMONIA [None]
